FAERS Safety Report 6590768-0 (Version None)
Quarter: 2010Q1

REPORT INFORMATION
  Report Type: 
  Country: None (occurrence: None)
  Receive Date: 20100205
  Receipt Date: 20100121
  Transmission Date: 20100710
  Serious: Yes (Other)
  Sender: FDA-Public Use
  Company Number: AUR-APL-2010-00308

PATIENT
  Age: 73 Year
  Sex: Male
  Weight: 87.98 kg

DRUGS (12)
  1. SIMVASTATIN [Suspect]
     Indication: BLOOD CHOLESTEROL INCREASED
     Dosage: 30MG
  2. LIPITOR [Suspect]
     Indication: BLOOD CHOLESTEROL INCREASED
     Dosage: 80MG - DAILY - ORAL
     Route: 048
  3. CHANTIX [Suspect]
  4. LISINOPRIL [Concomitant]
  5. BACLOFEN [Concomitant]
  6. ATENOLOL [Concomitant]
  7. HYDROCODONE [Concomitant]
  8. VITAMIN E [Concomitant]
  9. VITAMIN C [Concomitant]
  10. VICODIN [Concomitant]
  11. ACETYLSALICYLIC ACID [Concomitant]
  12. CHONDROITIN/GLUCOSAMINE [Concomitant]

REACTIONS (4)
  - MUSCLE SPASMS [None]
  - MYALGIA [None]
  - SCIATICA [None]
  - WEIGHT INCREASED [None]
